FAERS Safety Report 5807491-X (Version None)
Quarter: 2008Q3

REPORT INFORMATION
  Report Type: 
  Country: None (occurrence: None)
  Receive Date: 20080711
  Receipt Date: 20080630
  Transmission Date: 20090109
  Serious: Yes (Hospitalization)
  Sender: FDA-Public Use
  Company Number: US-CVT-080055

PATIENT

DRUGS (8)
  1. RANEXA [Suspect]
     Indication: ANGINA PECTORIS
     Dosage: 500 MG, BID
     Route: 048
     Dates: start: 20080501, end: 20080527
  2. RANEXA [Suspect]
     Dosage: 500 MG, QD
     Route: 048
     Dates: start: 20080507, end: 20080501
  3. PLAVIX [Concomitant]
     Dosage: 75 MG, QD
     Route: 048
  4. HYZAAR [Concomitant]
     Dosage: 100 MG, QD
     Route: 048
  5. ASPIRIN [Concomitant]
     Dosage: 81 MG, QD
     Route: 045
  6. COREG [Concomitant]
     Dosage: 6.25 MG, BID
     Route: 048
  7. XANAX [Concomitant]
  8. PREVACID [Concomitant]

REACTIONS (3)
  - ACCELERATED HYPERTENSION [None]
  - DIZZINESS [None]
  - HYPONATRAEMIA [None]
